FAERS Safety Report 7655391-5 (Version None)
Quarter: 2011Q3

REPORT INFORMATION
  Report Type: 
  Country: None (occurrence: None)
  Receive Date: 20110804
  Receipt Date: 20110725
  Transmission Date: 20111222
  Serious: Yes (Life-Threatening, Hospitalization, Other)
  Sender: FDA-Public Use
  Company Number: US-BAYER-201037988NA

PATIENT
  Age: 33 Year
  Sex: Female
  Weight: 98.413 kg

DRUGS (13)
  1. POTASSIUM [Concomitant]
  2. HYDROCHLOROTHIAZIDE [Concomitant]
  3. METAMUCIL-2 [Concomitant]
  4. MULTI-VITAMINS [Concomitant]
  5. YASMIN [Suspect]
     Indication: CONTRACEPTION
     Dosage: UNK
     Route: 048
     Dates: start: 20050706
  6. YAZ [Suspect]
     Indication: CONTRACEPTION
     Dosage: UNK
     Route: 048
     Dates: start: 20070301, end: 20091201
  7. HYDROCODONE BITARTRATE AND ACETAMINOPHEN [Concomitant]
  8. LISINOPRIL [Concomitant]
     Dosage: UNK
     Dates: start: 20070101, end: 20080101
  9. SEASONIQUE [Concomitant]
  10. THYROID MEDICATIONS [Concomitant]
  11. CYCLOBENZAPRINE [Concomitant]
  12. YASMIN [Suspect]
     Dosage: UNK
     Dates: start: 20060306, end: 20060812
  13. LIBRAX [Concomitant]

REACTIONS (5)
  - CHOLECYSTECTOMY [None]
  - CHOLECYSTITIS CHRONIC [None]
  - PULMONARY EMBOLISM [None]
  - JUGULAR VEIN THROMBOSIS [None]
  - BILIARY DYSKINESIA [None]
